FAERS Safety Report 4362613-5 (Version None)
Quarter: 2004Q2

REPORT INFORMATION
  Report Type: 
  Country: None (occurrence: None)
  Receive Date: 20040520
  Receipt Date: 20040507
  Transmission Date: 20050107
  Serious: Yes (Hospitalization)
  Sender: FDA-Public Use
  Company Number: US-JNJFOC-20030900896

PATIENT
  Age: 66 Year
  Sex: Female

DRUGS (14)
  1. INFLIXIMAB (INFLIXIMAB, RECOMBINANT) LYOPHILIZED POWDER [Suspect]
     Indication: RHEUMATOID ARTHRITIS
     Dosage: , 1 IN 1 DAY, INTRAVENOUS; INTRAVENOUS
     Route: 042
     Dates: end: 20030523
  2. INFLIXIMAB (INFLIXIMAB, RECOMBINANT) LYOPHILIZED POWDER [Suspect]
     Indication: RHEUMATOID ARTHRITIS
     Dosage: , 1 IN 1 DAY, INTRAVENOUS; INTRAVENOUS
     Route: 042
     Dates: start: 20021003
  3. PREDNISONE [Concomitant]
  4. PREMARIN [Concomitant]
  5. FOLIC ACID [Concomitant]
  6. METOPROLOL (METOPROLOL) [Concomitant]
  7. ZOCOR [Concomitant]
  8. DARVOCET [Concomitant]
  9. CALCIUM + D (CALCIUM) [Concomitant]
  10. HUMALOG INSULIN (INSULIN LISPRO) [Concomitant]
  11. LANTIS INSULIN (INSULIN GLARGINE) [Concomitant]
  12. METHOTREXATE [Concomitant]
  13. GLUCOSAMINE/CHONDROITIN (GLUCOSAMINE W/CHONDROITIN SULFATES) [Concomitant]
  14. ASPIRIN [Concomitant]

REACTIONS (3)
  - HISTOPLASMOSIS CUTANEOUS [None]
  - PYREXIA [None]
  - VITREOUS HAEMORRHAGE [None]
